FAERS Safety Report 9506597 (Version 1)
Quarter: 2013Q3

REPORT INFORMATION
  Report Type: Report from Study
  Country: US (occurrence: US)
  Receive Date: 20130907
  Receipt Date: 20130907
  Transmission Date: 20140515
  Serious: Yes (Hospitalization)
  Sender: FDA-Public Use
  Company Number: US-ROCHE-1270161

PATIENT
  Sex: Female

DRUGS (2)
  1. AVASTIN [Suspect]
     Indication: PRODUCT USED FOR UNKNOWN INDICATION
     Dosage: INJECTION TO R/ EYE
     Route: 065
     Dates: start: 2003
  2. LUCENTIS [Suspect]
     Indication: PRODUCT USED FOR UNKNOWN INDICATION
     Dosage: INJECTIONS TO THE L/EYE
     Route: 065
     Dates: start: 2009

REACTIONS (2)
  - Pseudomonas infection [Unknown]
  - Visual impairment [Not Recovered/Not Resolved]
